FAERS Safety Report 13024589 (Version 4)
Quarter: 2017Q1

REPORT INFORMATION
  Report Type: Spontaneous
  Country: NZ (occurrence: NZ)
  Receive Date: 20161213
  Receipt Date: 20170120
  Transmission Date: 20170428
  Serious: Yes (Other)
  Sender: FDA-Public Use
  Company Number: NZ-BEH-2016076019

PATIENT
  Age: 67 Year
  Sex: Female
  Weight: 63.4 kg

DRUGS (33)
  1. PRIVIGEN [Suspect]
     Active Substance: HUMAN IMMUNOGLOBULIN G
     Dosage: UNK
     Route: 042
  2. LAXSOL [Concomitant]
     Active Substance: DOCUSATE SODIUM\SENNOSIDES A AND B
     Dosage: 1-2 TABS BID PRN
     Route: 048
     Dates: start: 20161210
  3. PREDNISONE. [Concomitant]
     Active Substance: PREDNISONE
     Dosage: DOSE REDUCTION SCHEDULE
     Route: 048
     Dates: end: 20161208
  4. PLATELETS [Concomitant]
     Active Substance: HUMAN PLATELET, ALLOGENIC
     Dosage: 1 X ATD
     Route: 042
     Dates: start: 20161209
  5. PRIVIGEN [Suspect]
     Active Substance: HUMAN IMMUNOGLOBULIN G
     Dosage: UNK
     Route: 042
  6. OMEPRAZOLE. [Concomitant]
     Active Substance: OMEPRAZOLE
     Dosage: 40 MG, BID
     Route: 048
     Dates: start: 20161208
  7. MYLANTA [Concomitant]
     Active Substance: ALUMINUM HYDROXIDE\DIMETHICONE\MAGNESIUM HYDROXIDE
     Dosage: 10-20 ML, PRN
     Route: 048
     Dates: start: 20161208
  8. MELPHALAN [Concomitant]
     Active Substance: MELPHALAN
     Route: 065
  9. MEROPENEM. [Concomitant]
     Active Substance: MEROPENEM
     Dosage: 1000 NO UNIT SPECIFIED, TOT
     Route: 065
     Dates: start: 20161213
  10. CHLORPHENAMINE [Concomitant]
     Active Substance: CHLORPHENIRAMINE MALEATE
     Indication: PREMEDICATION
     Dosage: 10 MG, TOT (STAT DOSE)
     Route: 065
     Dates: start: 20161213, end: 20161213
  11. PRIVIGEN [Suspect]
     Active Substance: HUMAN IMMUNOGLOBULIN G
     Dosage: 7 X 100ML
     Route: 042
     Dates: start: 20161213, end: 20161213
  12. TAZOCIN [Concomitant]
     Active Substance: PIPERACILLIN SODIUM\TAZOBACTAM SODIUM
     Indication: SEPSIS
     Dosage: 4.5 G, TID (Q8H)
     Route: 048
     Dates: start: 20161208, end: 20161213
  13. LORAZEPAM. [Concomitant]
     Active Substance: LORAZEPAM
     Dosage: 1 MG, NOCTE PRN
     Route: 048
     Dates: start: 20161208
  14. DOMPERIDONE [Concomitant]
     Active Substance: DOMPERIDONE
     Dosage: 10 MG, QID
     Route: 048
     Dates: start: 20161210
  15. TRANEXAMIC ACID. [Concomitant]
     Active Substance: TRANEXAMIC ACID
     Indication: PLATELET COUNT DECREASED
     Dosage: 1 G, TID
     Route: 048
     Dates: start: 20161210
  16. PLATELETS [Concomitant]
     Active Substance: HUMAN PLATELET, ALLOGENIC
     Dosage: 1 X ATD
     Route: 042
     Dates: start: 20161208
  17. SLOW K [Concomitant]
     Active Substance: POTASSIUM CHLORIDE
     Dosage: 1200 MG, TID
     Route: 048
     Dates: start: 20161211, end: 20161214
  18. PLATELETS [Concomitant]
     Active Substance: HUMAN PLATELET, ALLOGENIC
     Dosage: 1 X ATD
     Route: 042
     Dates: start: 20161208
  19. PLATELETS [Concomitant]
     Active Substance: HUMAN PLATELET, ALLOGENIC
     Dosage: 1 X ATD
     Route: 042
     Dates: start: 20161211
  20. PRIVIGEN [Suspect]
     Active Substance: HUMAN IMMUNOGLOBULIN G
     Indication: IMMUNE THROMBOCYTOPENIC PURPURA
     Dosage: 19 G, TOT
     Route: 042
     Dates: start: 20161211
  21. ULTRAPROCT                         /00225401/ [Concomitant]
     Dosage: UNK
     Route: 054
     Dates: start: 20161211
  22. PREDNISONE. [Concomitant]
     Active Substance: PREDNISONE
     Dosage: 10 MG, QD (ON A DOSE REDUCTION SCHEDULE)
     Route: 065
     Dates: start: 20161209
  23. CLEAR EYES                         /00419602/ [Concomitant]
     Dosage: 1-2 DROPS IN EACH EYE PRN
     Route: 047
  24. PRIVIGEN [Suspect]
     Active Substance: HUMAN IMMUNOGLOBULIN G
     Dosage: UNK
     Route: 042
  25. CODEINE PHOSPHATE [Concomitant]
     Active Substance: CODEINE PHOSPHATE
     Indication: PAIN
     Dosage: 15-30MG, Q4H PRN
     Route: 048
     Dates: start: 20161208
  26. ONDASETRON                         /00955301/ [Concomitant]
     Active Substance: ONDANSETRON
     Dosage: 4-8MG,TID PRN
     Route: 048
     Dates: start: 20161208
  27. CYCLIZINE [Concomitant]
     Active Substance: CYCLIZINE
     Dosage: 25 MG, TID
     Route: 048
     Dates: start: 20161209, end: 20161210
  28. PENTAMIDINE [Concomitant]
     Active Substance: PENTAMIDINE
     Dosage: 4 MG/KG, QMT
     Route: 065
  29. HYDROCORTISONE. [Concomitant]
     Active Substance: HYDROCORTISONE
     Indication: PREMEDICATION
     Dosage: 100 MG, TOT (STAT DOSE)
     Route: 042
     Dates: start: 20161213, end: 20161213
  30. MORPHINE [Concomitant]
     Active Substance: MORPHINE
     Indication: PAIN
     Dosage: 5-10MG, Q4H PRN
     Route: 048
     Dates: start: 20161210
  31. PARACETAMOL [Concomitant]
     Active Substance: ACETAMINOPHEN
     Dosage: 1 G, QID PRN
     Route: 048
     Dates: start: 20161209
  32. VALACICLOVIR [Concomitant]
     Active Substance: VALACYCLOVIR HYDROCHLORIDE
     Dosage: 500 MG, BID
     Route: 048
     Dates: start: 20161208
  33. FLUCONAZOLE. [Concomitant]
     Active Substance: FLUCONAZOLE
     Dosage: 200 MG, QD
     Route: 048
     Dates: start: 20161101

REACTIONS (10)
  - Respiratory rate increased [Recovered/Resolved]
  - Neck pain [Recovered/Resolved]
  - Pain in extremity [Recovered/Resolved]
  - Anxiety [Recovered/Resolved]
  - Chills [Recovered/Resolved]
  - Hypersensitivity [Not Recovered/Not Resolved]
  - Pyrexia [Recovered/Resolved]
  - Rash [Not Recovered/Not Resolved]
  - Hypertension [Recovered/Resolved]
  - Body temperature increased [Recovered/Resolved]

NARRATIVE: CASE EVENT DATE: 20161211
